FAERS Safety Report 17778004 (Version 1)
Quarter: 2020Q2

REPORT INFORMATION
  Report Type: Other
  Country: CA (occurrence: CA)
  Receive Date: 20200513
  Receipt Date: 20200513
  Transmission Date: 20200714
  Serious: Yes (Other)
  Sender: FDA-Public Use
  Company Number: CA-APOTEX-2020AP010765

PATIENT
  Age: 33 Year
  Sex: Female

DRUGS (1)
  1. FENTANYL. [Suspect]
     Active Substance: FENTANYL
     Indication: PRODUCT USED FOR UNKNOWN INDICATION
     Dosage: UNK
     Route: 065

REACTIONS (6)
  - Respiratory depression [Unknown]
  - Drug abuse [Unknown]
  - Coma scale abnormal [Recovered/Resolved]
  - Overdose [Recovered/Resolved]
  - Apnoea [Recovered/Resolved]
  - Depressed level of consciousness [Unknown]
